FAERS Safety Report 8975579 (Version 2)
Quarter: 2013Q3

REPORT INFORMATION
  Report Type: Spontaneous
  Country: US (occurrence: US)
  Receive Date: 20121219
  Receipt Date: 20130701
  Transmission Date: 20140515
  Serious: Yes (Other)
  Sender: FDA-Public Use
  Company Number: US-ASTRAZENECA-2012SE92746

PATIENT
  Age: 68 Year
  Sex: Male
  Weight: 72.6 kg

DRUGS (1)
  1. NEXIUM [Suspect]
     Indication: GASTROOESOPHAGEAL REFLUX DISEASE
     Route: 048
     Dates: start: 2009, end: 2012

REACTIONS (5)
  - Lower limb fracture [Unknown]
  - Limb injury [Unknown]
  - Fall [Unknown]
  - Prostatitis [Unknown]
  - Dermatitis allergic [Unknown]
